FAERS Safety Report 6678041-3 (Version None)
Quarter: 2010Q2

REPORT INFORMATION
  Report Type: 
  Country: None (occurrence: None)
  Receive Date: 20100412
  Receipt Date: 20100329
  Transmission Date: 20101027
  Serious: Yes (Other)
  Sender: FDA-Public Use
  Company Number: PHEH2008US00459

PATIENT
  Sex: Female

DRUGS (23)
  1. AREDIA [Suspect]
     Dosage: 30 MG, MONTHLY
     Dates: end: 20020101
  2. ZOMETA [Suspect]
     Indication: BONE LESION
     Dosage: 4 MG, MONTHLY
     Dates: start: 20020101, end: 20050701
  3. ZOMETA [Suspect]
     Dosage: 1 MG, UNK
  4. MELPHALAN HYDROCHLORIDE [Concomitant]
  5. PREDNISOLONE [Concomitant]
  6. LASIX [Concomitant]
  7. CIPRO [Concomitant]
     Dosage: 500 MG, BID
  8. LEVOTHYROXINE SODIUM [Concomitant]
     Dosage: 150 MCG
  9. FUROSEMIDE [Concomitant]
     Dosage: 40 MG
  10. MIACALCIN [Concomitant]
     Dosage: 200 UNITS
     Route: 045
  11. FLUZONE [Concomitant]
     Dosage: UNK
  12. GLIPIZIDE [Concomitant]
     Dosage: 25 MG
  13. CHLORHEXIDINE GLUCONATE [Concomitant]
     Dosage: UNK
  14. AMOXICILLIN [Concomitant]
     Dosage: UNK
  15. PROAIR HFA (ALBUTEROL SULFATE) INHALATION AEROSOL [Concomitant]
     Dosage: UNK
  16. KLOR-CON [Concomitant]
     Dosage: UNK
  17. SEREVENT [Concomitant]
     Dosage: UNK
  18. PULMICORT [Concomitant]
     Dosage: UNK
  19. AVELOX [Concomitant]
     Dosage: 400 MG / QD
  20. ASPIRIN [Concomitant]
  21. NYSTATIN [Concomitant]
  22. SYNTHROID [Concomitant]
  23. SINGULAIR [Concomitant]

REACTIONS (29)
  - AMYLOIDOSIS [None]
  - ANHEDONIA [None]
  - ANXIETY [None]
  - ATELECTASIS [None]
  - BONE DEBRIDEMENT [None]
  - BONE DISORDER [None]
  - BRONCHITIS [None]
  - CARDIOMEGALY [None]
  - CUSHINGOID [None]
  - ENDODONTIC PROCEDURE [None]
  - GOITRE [None]
  - HUMERUS FRACTURE [None]
  - INJURY [None]
  - MEDIASTINAL DISORDER [None]
  - MEDIASTINAL MASS [None]
  - OBESITY [None]
  - OEDEMA PERIPHERAL [None]
  - OESOPHAGEAL STENOSIS [None]
  - OSTEOMYELITIS [None]
  - OSTEONECROSIS [None]
  - OSTEOPENIA [None]
  - OSTEOPOROSIS [None]
  - PAIN [None]
  - PULMONARY MASS [None]
  - RIB FRACTURE [None]
  - SEQUESTRECTOMY [None]
  - TONGUE DISORDER [None]
  - TOOTH EXTRACTION [None]
  - TOOTHACHE [None]
